FAERS Safety Report 8030063-6 (Version None)
Quarter: 2012Q1

REPORT INFORMATION
  Report Type: 
  Country: None (occurrence: None)
  Receive Date: 20120109
  Receipt Date: 20120103
  Transmission Date: 20120608
  Serious: Yes (Hospitalization)
  Sender: FDA-Public Use
  Company Number: US-JNJFOC-20120100898

PATIENT
  Sex: Male
  Weight: 53.07 kg

DRUGS (1)
  1. RISPERDAL [Suspect]
     Indication: SCHIZOPHRENIA
     Route: 048
     Dates: end: 20021101

REACTIONS (5)
  - MENTAL IMPAIRMENT [None]
  - TREATMENT NONCOMPLIANCE [None]
  - FEELING ABNORMAL [None]
  - HALLUCINATION, AUDITORY [None]
  - AGGRESSION [None]
